FAERS Safety Report 5888887-7 (Version None)
Quarter: 2008Q3

REPORT INFORMATION
  Report Type: 
  Country: None (occurrence: None)
  Receive Date: 20080919
  Receipt Date: 20080911
  Transmission Date: 20090109
  Serious: Yes (Other)
  Sender: FDA-Public Use
  Company Number: PHHY2008IT18508

PATIENT
  Sex: Male

DRUGS (4)
  1. COMBISARTAN [Suspect]
     Indication: ACCELERATED HYPERTENSION
     Dosage: 172.5 MG, DAILY
     Route: 048
     Dates: start: 20080717, end: 20080811
  2. COMBISARTAN [Suspect]
     Indication: ESSENTIAL HYPERTENSION
  3. CARBOLITHIUM [Concomitant]
     Indication: BIPOLAR I DISORDER
     Dosage: 300 MG, BID
     Dates: start: 19690101, end: 20080809
  4. CARBOLITHIUM [Concomitant]
     Indication: BIPOLAR DISORDER

REACTIONS (6)
  - ANTIPSYCHOTIC DRUG LEVEL ABOVE THERAPEUTIC [None]
  - ASTHENIA [None]
  - DIARRHOEA [None]
  - JOINT INSTABILITY [None]
  - MUSCULAR WEAKNESS [None]
  - TREMOR [None]
